FAERS Safety Report 22263240 (Version 1)
Quarter: 2023Q2

REPORT INFORMATION
  Report Type: Other
  Country: US (occurrence: None)
  Receive Date: 20230428
  Receipt Date: 20230428
  Transmission Date: 20230721
  Serious: Yes (Other)
  Sender: FDA-Public Use
  Company Number: US-ROCHE-3337011

PATIENT
  Age: 69 Year
  Sex: Female

DRUGS (2)
  1. ACTEMRA [Suspect]
     Active Substance: TOCILIZUMAB
     Indication: Rheumatoid arthritis
     Dosage: INFUSE 300MG INTRAVENOUSLY (OVER 60 MINUTES) EVERY 4 WEEK(S)?FORM OF ADMIN: VIAL
     Route: 042
  2. ACTEMRA [Suspect]
     Active Substance: TOCILIZUMAB
     Indication: Rheumatoid lung
     Dosage: INFUSE 300MG INTRAVENOUSLY (OVER 60 MINUTES) EVERY 4 WEEK(S)?FORM OF ADMIN: VIAL
     Route: 042

REACTIONS (2)
  - Mental impairment [Unknown]
  - Interstitial lung disease [Unknown]
